APPROVED DRUG PRODUCT: TAUVID
Active Ingredient: FLORTAUCIPIR F-18
Strength: 50ML (8.1-100mCi/ML)
Dosage Form/Route: SOLUTION;INTRAVENOUS
Application: N212123 | Product #003
Applicant: AVID RADIOPHARMACEUTICALS INC
Approved: Jul 1, 2022 | RLD: Yes | RS: Yes | Type: RX

PATENTS:
Patent 8932557 | Expires: May 26, 2032